FAERS Safety Report 5709859-9 (Version None)
Quarter: 2008Q2

REPORT INFORMATION
  Report Type: 
  Country: None (occurrence: None)
  Receive Date: 20080418
  Receipt Date: 20070326
  Transmission Date: 20081010
  Serious: No
  Sender: FDA-Public Use
  Company Number: US-ASTRAZENECA-2007UW06035

PATIENT
  Age: 88 Year
  Sex: Male

DRUGS (1)
  1. TOPROL-XL [Suspect]
     Route: 048
     Dates: start: 20060301

REACTIONS (4)
  - COELIAC DISEASE [None]
  - CONSTIPATION [None]
  - DIARRHOEA [None]
  - STOMACH DISCOMFORT [None]
